FAERS Safety Report 7888781-6 (Version None)
Quarter: 2011Q4

REPORT INFORMATION
  Report Type: 
  Country: None (occurrence: None)
  Receive Date: 20111102
  Receipt Date: 20111102
  Transmission Date: 20120403
  Serious: Yes (Life-Threatening, Hospitalization)
  Sender: FDA-Public Use
  Company Number: None

PATIENT
  Age: 52 Year
  Sex: Female
  Weight: 63.5036 kg

DRUGS (2)
  1. BACTRIM [Suspect]
     Indication: URINARY TRACT INFECTION
     Dosage: 2X'S DAY
     Dates: start: 20111013
  2. BACTRIM [Suspect]
     Indication: URINARY TRACT INFECTION
     Dosage: 2X'S DAY
     Dates: start: 20111012

REACTIONS (1)
  - STEVENS-JOHNSON SYNDROME [None]
